FAERS Safety Report 6139048-8 (Version None)
Quarter: 2009Q1

REPORT INFORMATION
  Report Type: 
  Country: None (occurrence: None)
  Receive Date: 20090324
  Receipt Date: 20090319
  Transmission Date: 20090719
  Serious: Yes (Hospitalization)
  Sender: FDA-Public Use
  Company Number: 2009US000853

PATIENT
  Age: 39 Year
  Sex: Female

DRUGS (2)
  1. PROGRAF [Suspect]
     Indication: HEART TRANSPLANT
     Dates: end: 20090316
  2. PROGRAF [Suspect]
     Indication: HEART TRANSPLANT
     Dates: start: 20090318, end: 20090319

REACTIONS (3)
  - DRUG EXPOSURE DURING PREGNANCY [None]
  - PREGNANCY [None]
  - TREATMENT NONCOMPLIANCE [None]
